FAERS Safety Report 6383624-4 (Version None)
Quarter: 2009Q3

REPORT INFORMATION
  Report Type: 
  Country: None (occurrence: None)
  Receive Date: 20090929
  Receipt Date: 20090929
  Transmission Date: 20100115
  Serious: Yes (Hospitalization)
  Sender: FDA-Public Use
  Company Number: None

PATIENT
  Age: 63 Year
  Sex: Male

DRUGS (2)
  1. WARFARIN SODIUM [Suspect]
     Indication: DEEP VEIN THROMBOSIS
     Dates: end: 20090721
  2. ASPIRIN [Suspect]
     Indication: CARDIAC OPERATION
     Dates: end: 20090721

REACTIONS (3)
  - HAEMORRHAGE [None]
  - PAIN [None]
  - PERIRENAL HAEMATOMA [None]
